FAERS Safety Report 14136816 (Version 1)
Quarter: 2017Q4

REPORT INFORMATION
  Report Type: Spontaneous
  Country: US (occurrence: None)
  Receive Date: 20171027
  Receipt Date: 20171027
  Transmission Date: 20180321
  Serious: No
  Sender: FDA-Public Use
  Company Number: None

PATIENT
  Age: 42 Year
  Sex: Female
  Weight: 62.6 kg

DRUGS (8)
  1. DOXYCYCLINE MONOHYDRATE 100MG CAPS [Suspect]
     Active Substance: DOXYCYCLINE
     Indication: PRURITUS
     Dosage: 2 DAILY (60 DAY SUPPLY) BY MOUTH W/FOOD
     Route: 048
     Dates: start: 20171005, end: 20171012
  2. VITAMIN D [Concomitant]
     Active Substance: CHOLECALCIFEROL
  3. DOXYCYCLINE MONOHYDRATE 100MG CAPS [Suspect]
     Active Substance: DOXYCYCLINE
     Indication: SKIN IRRITATION
     Dosage: 2 DAILY (60 DAY SUPPLY) BY MOUTH W/FOOD
     Route: 048
     Dates: start: 20171005, end: 20171012
  4. DOXYCYCLINE MONOHYDRATE 100MG CAPS [Suspect]
     Active Substance: DOXYCYCLINE
     Indication: PAIN OF SKIN
     Dosage: 2 DAILY (60 DAY SUPPLY) BY MOUTH W/FOOD
     Route: 048
     Dates: start: 20171005, end: 20171012
  5. STEROID SHOTS [Concomitant]
     Active Substance: UNSPECIFIED INGREDIENT
  6. CALCIUM [Concomitant]
     Active Substance: CALCIUM
  7. MULTIVIT [Concomitant]
     Active Substance: VITAMINS
  8. DOXYCYCLINE MONOHYDRATE 100MG CAPS [Suspect]
     Active Substance: DOXYCYCLINE
     Indication: ERYTHEMA
     Dosage: 2 DAILY (60 DAY SUPPLY) BY MOUTH W/FOOD
     Route: 048
     Dates: start: 20171005, end: 20171012

REACTIONS (3)
  - Depression [None]
  - Feeling of despair [None]
  - Anxiety [None]

NARRATIVE: CASE EVENT DATE: 20171005
